FAERS Safety Report 6511116-8 (Version None)
Quarter: 2009Q4

REPORT INFORMATION
  Report Type: 
  Country: None (occurrence: None)
  Receive Date: 20091222
  Receipt Date: 20091215
  Transmission Date: 20100525
  Serious: Yes (Hospitalization)
  Sender: FDA-Public Use
  Company Number: DE-PFIZER INC-2009310046

PATIENT
  Age: 79 Year

DRUGS (4)
  1. CELEBREX [Suspect]
     Indication: POLYARTHRITIS
     Dosage: 200 MG, 1X/DAY IN THE MORNING
     Route: 048
  2. CELEBREX [Suspect]
     Indication: POLYMYALGIA RHEUMATICA
  3. NOVALGIN [Concomitant]
     Indication: POLYARTHRITIS
     Dosage: UNK
     Dates: start: 20091101
  4. NOVALGIN [Concomitant]
     Indication: POLYMYALGIA RHEUMATICA

REACTIONS (2)
  - PANCREATITIS [None]
  - PLEURISY [None]
